FAERS Safety Report 16532419 (Version 1)
Quarter: 2019Q3

REPORT INFORMATION
  Report Type: Spontaneous
  Country: US (occurrence: US)
  Receive Date: 20190703
  Receipt Date: 20190703
  Transmission Date: 20191004
  Serious: Yes (Other)
  Sender: FDA-Public Use
  Company Number: None

PATIENT
  Age: 84 Year
  Sex: Male
  Weight: 80.3 kg

DRUGS (1)
  1. ALPRAZOLAM. [Suspect]
     Active Substance: ALPRAZOLAM
     Indication: ANXIETY
     Route: 048

REACTIONS (6)
  - Therapeutic response changed [None]
  - Tremor [None]
  - Confusional state [None]
  - Somnolence [None]
  - Dizziness [None]
  - Intentional product use issue [None]

NARRATIVE: CASE EVENT DATE: 20190702
